FAERS Safety Report 7542520-7 (Version None)
Quarter: 2011Q2

REPORT INFORMATION
  Report Type: 
  Country: None (occurrence: None)
  Receive Date: 20110613
  Receipt Date: 20110606
  Transmission Date: 20111010
  Serious: Yes (Hospitalization)
  Sender: FDA-Public Use
  Company Number: US-ABBOTT-11P-163-0720915-00

PATIENT
  Sex: Female
  Weight: 60.836 kg

DRUGS (15)
  1. SUBOXONE [Concomitant]
     Indication: PAIN
     Dosage: 2 AS NEEDED
     Route: 060
  2. HUMIRA [Suspect]
     Indication: RHEUMATOID ARTHRITIS
     Dates: start: 20101205, end: 20110305
  3. SOMA [Concomitant]
     Indication: MUSCLE RELAXANT THERAPY
  4. ADVAIR DISKUS 100/50 [Concomitant]
     Indication: PRODUCT USED FOR UNKNOWN INDICATION
     Dosage: DISCUS, 250/50 TWICE A DAY
  5. FOLIC ACID [Concomitant]
     Indication: PRODUCT USED FOR UNKNOWN INDICATION
  6. HYDROXYZINE HCL [Concomitant]
     Indication: PRURITUS
     Dosage: 1-3 TABLETS AT BEDTIME
  7. KLONOPIN [Concomitant]
     Indication: PRODUCT USED FOR UNKNOWN INDICATION
  8. AMLODIPINE BESYLATE [Concomitant]
     Indication: PRODUCT USED FOR UNKNOWN INDICATION
  9. MOTRIN [Concomitant]
     Indication: PRODUCT USED FOR UNKNOWN INDICATION
  10. RESTORIL [Concomitant]
     Indication: INSOMNIA
  11. TEMAZEPAM [Concomitant]
     Indication: PRODUCT USED FOR UNKNOWN INDICATION
  12. HUMIRA [Suspect]
     Indication: GRANULOMA ANNULARE
  13. FUROSEMIDE [Concomitant]
     Indication: PRODUCT USED FOR UNKNOWN INDICATION
  14. IMITREX [Concomitant]
     Indication: MIGRAINE
  15. FOSAMAX [Concomitant]
     Indication: BONE DISORDER

REACTIONS (5)
  - SWOLLEN TONGUE [None]
  - DYSPNOEA [None]
  - OEDEMA PERIPHERAL [None]
  - HYPERSENSITIVITY [None]
  - PRURITUS GENERALISED [None]
